FAERS Safety Report 12888122 (Version 28)
Quarter: 2021Q4

REPORT INFORMATION
  Report Type: Other
  Country: GB (occurrence: GB)
  Receive Date: 20161027
  Receipt Date: 20211118
  Transmission Date: 20220304
  Serious: Yes (Life-Threatening, Hospitalization, Disabling)
  Sender: FDA-Public Use
  Company Number: None

PATIENT
  Age: 42 Year
  Sex: Female
  Weight: 98 kg

DRUGS (76)
  1. TRASTUZUMAB [Suspect]
     Active Substance: TRASTUZUMAB
     Indication: Breast cancer metastatic
     Dosage: (08/08/16 TO 30/08/16 420 MG) 798MG LOADING THEN 609MG
     Route: 041
     Dates: start: 20160718, end: 20160830
  2. TRASTUZUMAB [Suspect]
     Active Substance: TRASTUZUMAB
     Route: 042
     Dates: start: 20160808, end: 20160808
  3. TRASTUZUMAB [Suspect]
     Active Substance: TRASTUZUMAB
     Route: 042
     Dates: start: 20160830, end: 20160830
  4. TRASTUZUMAB [Suspect]
     Active Substance: TRASTUZUMAB
     Dosage: LOADING
     Route: 042
  5. PERTUZUMAB [Suspect]
     Active Substance: PERTUZUMAB
     Indication: Breast cancer metastatic
     Dosage: 840MG FIRST DOSE THEN 420MG
     Route: 042
     Dates: start: 20160718, end: 20160830
  6. PERTUZUMAB [Suspect]
     Active Substance: PERTUZUMAB
     Dosage: 840MG FIRST DOSE THEN 420MG
     Route: 042
     Dates: start: 20160808, end: 20160830
  7. PERTUZUMAB [Suspect]
     Active Substance: PERTUZUMAB
     Dosage: MONTHLY, 840MG FIRST DOSE THEN 420MG
     Route: 042
  8. DOCETAXEL [Suspect]
     Active Substance: DOCETAXEL
     Indication: Breast cancer metastatic
     Route: 042
     Dates: start: 20160718, end: 20160830
  9. DOCETAXEL [Suspect]
     Active Substance: DOCETAXEL
     Route: 042
     Dates: start: 20160808
  10. DOCETAXEL [Suspect]
     Active Substance: DOCETAXEL
     Route: 042
     Dates: start: 20160830
  11. DOCETAXEL [Suspect]
     Active Substance: DOCETAXEL
     Route: 042
     Dates: start: 20160808
  12. DOXYCYCLINE [Suspect]
     Active Substance: DOXYCYCLINE
     Indication: Breast cancer metastatic
     Route: 042
     Dates: start: 20160718
  13. DOXYCYCLINE [Suspect]
     Active Substance: DOXYCYCLINE
     Route: 042
     Dates: start: 20160830
  14. DOXYCYCLINE [Suspect]
     Active Substance: DOXYCYCLINE
     Route: 042
     Dates: start: 20160708
  15. ALFENTANIL [Concomitant]
     Active Substance: ALFENTANIL
     Indication: Product used for unknown indication
     Dosage: UNK
  16. BISOPROLOL [Concomitant]
     Active Substance: BISOPROLOL
     Indication: Acute kidney injury
  17. BONJELA [Concomitant]
     Active Substance: CETALKONIUM CHLORIDE\CHOLINE SALICYLATE\MENTHOL
     Indication: Neutropenic sepsis
  18. BUTYLSCOPOLAMINE BROMIDE [Concomitant]
     Active Substance: BUTYLSCOPOLAMINE BROMIDE
     Indication: Colitis ischaemic
  19. CALCIUM CHLORIDE [Concomitant]
     Active Substance: CALCIUM CHLORIDE
  20. CALCIUM GLUCONATE [Concomitant]
     Active Substance: CALCIUM GLUCONATE
     Indication: Colitis ischaemic
  21. CHLORHEXIDINE [Concomitant]
     Active Substance: CHLORHEXIDINE
     Indication: Colitis ischaemic
  22. CIPROFLOXACIN [Concomitant]
     Active Substance: CIPROFLOXACIN
     Indication: Neutropenic sepsis
  23. CITALOPRAM [Concomitant]
     Active Substance: CITALOPRAM HYDROBROMIDE
     Indication: Depression
     Route: 048
     Dates: start: 20160921
  24. CODEINE [Concomitant]
     Active Substance: CODEINE
  25. CYCLIZINE [Concomitant]
     Active Substance: CYCLIZINE
     Indication: Nausea
     Dosage: AS NEEDED
     Route: 048
     Dates: start: 20160908
  26. DALTEPARIN [Concomitant]
     Active Substance: DALTEPARIN
     Indication: Acute kidney injury
  27. DANAPAROID [Concomitant]
     Active Substance: DANAPAROID
  28. DEXTROSE [Concomitant]
     Active Substance: DEXTROSE
  29. DIAZEPAM [Concomitant]
     Active Substance: DIAZEPAM
     Indication: Colitis ischaemic
  30. DIHYDROCODEINE [Concomitant]
     Active Substance: DIHYDROCODEINE
     Indication: Pain
     Route: 048
     Dates: start: 20160908
  31. EPOPROSTENOL [Concomitant]
     Active Substance: EPOPROSTENOL
     Indication: Acute kidney injury
  32. FLUCLOXACILLIN [Concomitant]
     Active Substance: FLUCLOXACILLIN
  33. FLUCONAZOLE [Concomitant]
     Active Substance: FLUCONAZOLE
     Indication: Neutropenic sepsis
  34. FONDAPARINUX [Concomitant]
     Active Substance: FONDAPARINUX
     Indication: Colitis ischaemic
  35. DEXTROSE [Concomitant]
     Active Substance: DEXTROSE
     Indication: Neutropenic sepsis
  36. GLUCOGEL [Concomitant]
  37. NITROGLYCERIN [Concomitant]
     Active Substance: NITROGLYCERIN
  38. HARTMANS [Concomitant]
     Indication: Neutropenic sepsis
  39. HYDROCORTISONE [Concomitant]
     Active Substance: HYDROCORTISONE
     Indication: Neutropenic sepsis
  40. LEVOMEPROMAZINE [Concomitant]
     Active Substance: LEVOMEPROMAZINE
  41. LOPERAMIDE [Concomitant]
     Active Substance: LOPERAMIDE
     Indication: Diarrhoea
     Dosage: UP TO 4 TIMES A DAY IF NEEDED FOR LOOSE
     Route: 048
     Dates: start: 20161230
  42. MAGNESIUM SULFATE [Concomitant]
     Active Substance: MAGNESIUM SULFATE
  43. MAGNASPARTATE [Concomitant]
     Indication: Blood magnesium decreased
     Route: 065
     Dates: start: 20160908
  44. MEROPENEM [Concomitant]
     Active Substance: MEROPENEM
  45. METARAMINOL [Concomitant]
     Active Substance: METARAMINOL
     Indication: Colitis ischaemic
  46. METOCLOPRAMIDE [Concomitant]
     Active Substance: METOCLOPRAMIDE
     Indication: Colitis ischaemic
  47. METRONIDAZOLE [Concomitant]
     Active Substance: METRONIDAZOLE
     Indication: Colitis ischaemic
  48. MIDAZOLAM [Concomitant]
     Active Substance: MIDAZOLAM
     Indication: Colitis ischaemic
  49. MORPHINE [Concomitant]
     Active Substance: MORPHINE
  50. MORPHINE SULFATE [Concomitant]
     Active Substance: MORPHINE SULFATE
  51. CHLORHEXIDINE HYDROCHLORIDE\NEOMYCIN SULFATE [Concomitant]
     Active Substance: CHLORHEXIDINE HYDROCHLORIDE\NEOMYCIN SULFATE
  52. NOREPINEPHRINE [Concomitant]
     Active Substance: NOREPINEPHRINE
  53. NOREPINEPHRINE [Concomitant]
     Active Substance: NOREPINEPHRINE
  54. OMEPRAZOLE [Concomitant]
     Active Substance: OMEPRAZOLE
     Indication: Colitis ischaemic
  55. ONDANSETRON [Concomitant]
     Active Substance: ONDANSETRON
     Indication: Nausea
     Route: 048
     Dates: start: 20160908
  56. MORPHINE SULFATE [Concomitant]
     Active Substance: MORPHINE SULFATE
  57. OXYCODONE HYDROCHLORIDE [Concomitant]
     Active Substance: OXYCODONE HYDROCHLORIDE
     Indication: Pain
  58. ACETAMINOPHEN [Concomitant]
     Active Substance: ACETAMINOPHEN
     Indication: Pain
     Route: 048
     Dates: start: 20160908
  59. POTASSIUM BICARBONATE [Concomitant]
     Active Substance: POTASSIUM BICARBONATE
  60. POTASSIUM CHLORIDE [Concomitant]
     Active Substance: POTASSIUM CHLORIDE
  61. RAMIPRIL [Concomitant]
     Active Substance: RAMIPRIL
     Indication: Acute kidney injury
  62. SANDO K [Concomitant]
     Indication: Acute kidney injury
  63. SODIUM CITRATE [Concomitant]
     Active Substance: SODIUM CITRATE
  64. SODIUM LACTATE [Concomitant]
     Active Substance: SODIUM LACTATE
  65. TAUROLIDINE [Concomitant]
     Active Substance: TAUROLIDINE
  66. PIPERACILLIN SODIUM\TAZOBACTAM SODIUM [Concomitant]
     Active Substance: PIPERACILLIN SODIUM\TAZOBACTAM SODIUM
     Indication: Neutropenic sepsis
  67. TEICOPLANIN [Concomitant]
     Active Substance: TEICOPLANIN
     Indication: Colitis ischaemic
  68. TINZAPARIN [Concomitant]
     Active Substance: TINZAPARIN
  69. TOLTERODINE [Concomitant]
     Active Substance: TOLTERODINE
     Indication: Acute kidney injury
  70. TRANEXAMIC ACID [Concomitant]
     Active Substance: TRANEXAMIC ACID
  71. VASOPRESSIN [Concomitant]
     Active Substance: VASOPRESSIN
     Indication: Neutropenic sepsis
  72. ZOPICLONE [Concomitant]
     Active Substance: ZOPICLONE
  73. TAUROLIDINE [Concomitant]
     Active Substance: TAUROLIDINE
  74. SANDOCAL 1000 [Concomitant]
     Indication: Acute kidney injury
  75. MAGNESIUM ASPARTATE [Concomitant]
     Active Substance: MAGNESIUM ASPARTATE
  76. DOXYCYCLINE [Concomitant]
     Active Substance: DOXYCYCLINE
     Route: 048
     Dates: start: 20160803, end: 20160821

REACTIONS (7)
  - Colitis [Recovering/Resolving]
  - Neutropenic sepsis [Recovered/Resolved]
  - Colitis ischaemic [Not Recovered/Not Resolved]
  - Pneumonia [Recovered/Resolved]
  - Acute kidney injury [Recovered/Resolved]
  - Vomiting [Recovered/Resolved with Sequelae]
  - Abdominal pain [Recovered/Resolved with Sequelae]

NARRATIVE: CASE EVENT DATE: 20160907
